FAERS Safety Report 8898709 (Version 2)
Quarter: 2012Q4

REPORT INFORMATION
  Report Type: 
  Country: US (occurrence: US)
  Receive Date: 20121108
  Receipt Date: 20121220
  Transmission Date: 20130627
  Serious: Yes (Death, Life-Threatening)
  Sender: FDA-Public Use
  Company Number: US-MYLANLABS-2012S1022972

PATIENT
  Age: 59 Year
  Sex: Female

DRUGS (5)
  1. WARFARIN SODIUM [Suspect]
     Indication: CEREBROVASCULAR ACCIDENT
     Route: 048
  2. ANGIOMAX [Suspect]
     Indication: PERCUTANEOUS CORONARY INTERVENTION
     Route: 042
     Dates: start: 20120817
  3. ANGIOMAX [Suspect]
     Indication: PERCUTANEOUS CORONARY INTERVENTION
     Route: 042
     Dates: start: 20120817
  4. INTEGRILLIN [Concomitant]
     Dates: start: 20120817
  5. PLAVIX [Concomitant]
     Dates: start: 20120817

REACTIONS (3)
  - Acute pulmonary oedema [Fatal]
  - Pulmonary haemorrhage [Fatal]
  - Dyspnoea [Fatal]
